FAERS Safety Report 15753538 (Version 1)
Quarter: 2018Q4

REPORT INFORMATION
  Report Type: Spontaneous
  Country: IT (occurrence: IT)
  Receive Date: 20181222
  Receipt Date: 20181222
  Transmission Date: 20190205
  Serious: Yes (Other)
  Sender: FDA-Public Use
  Company Number: IT-TEVA-2018-IT-989406

PATIENT
  Age: 64 Year
  Sex: Female
  Weight: 67 kg

DRUGS (1)
  1. OXALIPLATINO TEVA [Suspect]
     Active Substance: OXALIPLATIN
     Dosage: 108 MG CYCLICAL
     Route: 042

REACTIONS (4)
  - Respiratory depression [Recovering/Resolving]
  - Joint warmth [Recovering/Resolving]
  - Dyspepsia [Recovering/Resolving]
  - Pruritus [Recovering/Resolving]

NARRATIVE: CASE EVENT DATE: 20181108
